FAERS Safety Report 6691426-4 (Version None)
Quarter: 2010Q2

REPORT INFORMATION
  Report Type: 
  Country: None (occurrence: None)
  Receive Date: 20100414
  Receipt Date: 20091006
  Transmission Date: 20101027
  Serious: Yes (Other)
  Sender: FDA-Public Use
  Company Number: 09-422

PATIENT
  Age: 63 Year
  Sex: Female

DRUGS (9)
  1. ALEVE [Suspect]
     Dosage: 440 MG, DAILY, ORAL
     Route: 048
     Dates: start: 20090929, end: 20091001
  2. SIMVASTATIN [Concomitant]
  3. DILTIAZEM HCL [Concomitant]
  4. METFORMIN HYDROCHLORIDE [Concomitant]
  5. LISINOPRIL [Concomitant]
  6. REQUIP [Concomitant]
  7. NEURONTIN [Concomitant]
  8. LEXAPRO [Concomitant]
  9. UNKNOWN DRUG [Concomitant]

REACTIONS (2)
  - OROPHARYNGEAL PAIN [None]
  - SWOLLEN TONGUE [None]
